FAERS Safety Report 5949912-8 (Version None)
Quarter: 2008Q4

REPORT INFORMATION
  Report Type: 
  Country: None (occurrence: None)
  Receive Date: 20081112
  Receipt Date: 20081029
  Transmission Date: 20090506
  Serious: Yes (Life-Threatening, Hospitalization)
  Sender: FDA-Public Use
  Company Number: DE-ELI_LILLY_AND_COMPANY-DE200810007126

PATIENT
  Age: 87 Year
  Sex: Female

DRUGS (5)
  1. CYMBALTA [Suspect]
     Indication: DEPRESSION
     Dosage: 30 MG, DAILY (1/D)
     Route: 048
     Dates: start: 20081003, end: 20081011
  2. FLUANXOL [Concomitant]
     Dosage: 2 MG, DAILY (1/D)
     Route: 065
  3. ASPIRIN [Concomitant]
     Dosage: 100 UNK, UNKNOWN
     Route: 065
  4. PANTOZOL [Concomitant]
     Dosage: 20 MG, UNKNOWN
     Route: 065
  5. NORVASC [Concomitant]
     Dosage: 5 MG, UNKNOWN
     Route: 065

REACTIONS (4)
  - DIARRHOEA [None]
  - GASTROENTERITIS [None]
  - SOPOR [None]
  - URINARY TRACT INFECTION [None]
